FAERS Safety Report 11119533 (Version 3)
Quarter: 2015Q2

REPORT INFORMATION
  Report Type: Report from Study
  Country: CA (occurrence: CA)
  Receive Date: 20150518
  Receipt Date: 20150605
  Transmission Date: 20150821
  Serious: Yes (Death, Hospitalization, Other)
  Sender: FDA-Public Use
  Company Number: PHHY2014CA170092

PATIENT
  Age: 47 Year
  Sex: Male

DRUGS (1)
  1. SANDOSTATIN LAR DEPOT [Suspect]
     Active Substance: OCTREOTIDE ACETATE
     Indication: NEUROENDOCRINE CARCINOMA METASTATIC
     Dosage: 30 MG, QMO
     Route: 030
     Dates: start: 20141024, end: 20150425

REACTIONS (10)
  - Death [Fatal]
  - Abdominal distension [Unknown]
  - Malignant neoplasm progression [Unknown]
  - Malaise [Unknown]
  - Mood altered [Unknown]
  - Terminal state [Unknown]
  - Pain [Unknown]
  - Peripheral swelling [Unknown]
  - General physical health deterioration [Unknown]
  - Irritability [Unknown]

NARRATIVE: CASE EVENT DATE: 2014
